FAERS Safety Report 12575959 (Version 1)
Quarter: 2016Q3

REPORT INFORMATION
  Report Type: Spontaneous
  Country: US (occurrence: US)
  Receive Date: 20160720
  Receipt Date: 20160720
  Transmission Date: 20161109
  Serious: Yes (Hospitalization)
  Sender: FDA-Public Use
  Company Number: US-NORTHSTAR HEALTHCARE HOLDINGS-US-2016NSR001814

PATIENT
  Age: 60 Year
  Sex: Female

DRUGS (1)
  1. ALLOPURINOL. [Suspect]
     Active Substance: ALLOPURINOL
     Indication: GOUT
     Dosage: UNK

REACTIONS (13)
  - Bloody discharge [Recovering/Resolving]
  - Depressed level of consciousness [Recovering/Resolving]
  - Pyrexia [Recovering/Resolving]
  - Hypovolaemia [Recovering/Resolving]
  - Pharyngeal haemorrhage [Recovering/Resolving]
  - Rhabdomyolysis [Recovering/Resolving]
  - Acute kidney injury [Recovering/Resolving]
  - Toxic epidermal necrolysis [Recovering/Resolving]
  - Rash [Recovering/Resolving]
  - Respiratory failure [Recovering/Resolving]
  - Infected skin ulcer [Recovering/Resolving]
  - Eye injury [Recovering/Resolving]
  - Gastrointestinal mucosal exfoliation [Recovering/Resolving]
